FAERS Safety Report 18991117 (Version 3)
Quarter: 2021Q2

REPORT INFORMATION
  Report Type: Other
  Country: US (occurrence: US)
  Receive Date: 20210310
  Receipt Date: 20210505
  Transmission Date: 20210717
  Serious: Yes (Other)
  Sender: FDA-Public Use
  Company Number: US-ROCHE-2785881

PATIENT
  Age: 87 Year
  Sex: Female

DRUGS (10)
  1. METHOTREXATE. [Concomitant]
     Active Substance: METHOTREXATE
  2. ADALIMUMAB [Concomitant]
     Active Substance: ADALIMUMAB
  3. ABATACEPT [Concomitant]
     Active Substance: ABATACEPT
  4. PREDNISONE. [Concomitant]
     Active Substance: PREDNISONE
  5. TACROLIMUS. [Concomitant]
     Active Substance: TACROLIMUS
  6. HYDROXYCHLOROQUINE [Concomitant]
     Active Substance: HYDROXYCHLOROQUINE
  7. RITUXAN [Suspect]
     Active Substance: RITUXIMAB
     Indication: RHEUMATOID ARTHRITIS
     Route: 041
  8. ETANERCEPT [Concomitant]
     Active Substance: ETANERCEPT
  9. SULFASALAZINE. [Concomitant]
     Active Substance: SULFASALAZINE
  10. CYCLOSPORINE. [Concomitant]
     Active Substance: CYCLOSPORINE

REACTIONS (1)
  - Pyoderma gangrenosum [Recovered/Resolved]
